FAERS Safety Report 6772497-3 (Version None)
Quarter: 2010Q2

REPORT INFORMATION
  Report Type: 
  Country: None (occurrence: None)
  Receive Date: 20100616
  Receipt Date: 20100412
  Transmission Date: 20101027
  Serious: No
  Sender: FDA-Public Use
  Company Number: US-ASTRAZENECA-2010SE16148

PATIENT
  Age: 4 Year
  Sex: Male
  Weight: 17.7 kg

DRUGS (3)
  1. PULMICORT RESPULES [Suspect]
     Indication: ASTHMA
     Route: 055
     Dates: start: 20070101, end: 20090101
  2. PULMICORT RESPULES [Suspect]
     Route: 055
     Dates: start: 20090101
  3. SINGULAIR [Concomitant]

REACTIONS (1)
  - DENTAL CARIES [None]
